FAERS Safety Report 9070528 (Version 1)
Quarter: 2013Q1

REPORT INFORMATION
  Report Type: Report from Study
  Country: US (occurrence: US)
  Receive Date: 20130128
  Receipt Date: 20130128
  Transmission Date: 20140127
  Serious: No
  Sender: FDA-Public Use
  Company Number: US-ABBOTT-12P-163-0891036-00

PATIENT
  Age: 56 None
  Sex: Male

DRUGS (1)
  1. HUMIRA 40 MG/0.8 ML PEN [Suspect]
     Indication: RHEUMATOID ARTHRITIS
     Route: 058
     Dates: start: 201110

REACTIONS (4)
  - Nausea [Unknown]
  - Headache [Unknown]
  - Abdominal discomfort [Unknown]
  - Hepatic enzyme increased [Unknown]
